FAERS Safety Report 8884566 (Version 1)
Quarter: 2012Q4

REPORT INFORMATION
  Report Type: 
  Country: US (occurrence: US)
  Receive Date: 20121102
  Receipt Date: 20121102
  Transmission Date: 20130627
  Serious: No
  Sender: FDA-Public Use
  Company Number: US-ASTRAZENECA-2012SE16252

PATIENT
  Age: 89 Year
  Sex: Female

DRUGS (1)
  1. CRESTOR [Suspect]
     Route: 048

REACTIONS (5)
  - Renal disorder [Unknown]
  - Single functional kidney [Unknown]
  - Hypertension [Unknown]
  - Gout [Unknown]
  - Arteriosclerosis [Unknown]
